FAERS Safety Report 23913543 (Version 1)
Quarter: 2024Q2

REPORT INFORMATION
  Report Type: Spontaneous
  Country: US (occurrence: US)
  Receive Date: 20240529
  Receipt Date: 20240529
  Transmission Date: 20240716
  Serious: No
  Sender: FDA-Public Use
  Company Number: US-TEVA-VS-3199836

PATIENT
  Age: 68 Year
  Sex: Female

DRUGS (36)
  1. PENICILLIN [Suspect]
     Active Substance: PENICILLIN
     Indication: Product used for unknown indication
     Route: 065
  2. VENTOLIN HFA [Concomitant]
     Active Substance: ALBUTEROL SULFATE
  3. LIPITOR [Concomitant]
     Active Substance: ATORVASTATIN CALCIUM
  4. CALCIUM 500 PO [Concomitant]
  5. CHOLECALCIFEROL [Concomitant]
     Active Substance: CHOLECALCIFEROL
  6. CYANOCOBALAMIN [Concomitant]
     Active Substance: CYANOCOBALAMIN
  7. CYCLOSPORINE [Concomitant]
     Active Substance: CYCLOSPORINE
  8. VOLTAREN [Concomitant]
     Active Substance: DICLOFENAC SODIUM
  9. CARDIZEM [Concomitant]
     Active Substance: DILTIAZEM HYDROCHLORIDE
  10. CARDIZEM CD [Concomitant]
     Active Substance: DILTIAZEM HYDROCHLORIDE
  11. DULOXETINE HYDROCHLORIDE [Concomitant]
     Active Substance: DULOXETINE HYDROCHLORIDE
  12. ESTRACE [Concomitant]
     Active Substance: ESTRADIOL
  13. ADVAIR DISKUS [Concomitant]
     Active Substance: FLUTICASONE PROPIONATE\SALMETEROL XINAFOATE
  14. LASIX [Concomitant]
     Active Substance: FUROSEMIDE
  15. APRESOLINE HYDROCHLORIDE [Concomitant]
     Active Substance: HYDRALAZINE HYDROCHLORIDE
  16. NIZORAL [Concomitant]
     Active Substance: KETOCONAZOLE
  17. LMX [Concomitant]
  18. METHYLPHENIDATE HYDROCHLORIDE [Concomitant]
     Active Substance: METHYLPHENIDATE HYDROCHLORIDE
  19. VITAMINS [Concomitant]
     Active Substance: VITAMINS
  20. BACTROBAN [Concomitant]
     Active Substance: MUPIROCIN CALCIUM
  21. ANAPROX [Concomitant]
     Active Substance: NAPROXEN SODIUM
  22. PRILOSEC [Concomitant]
     Active Substance: OMEPRAZOLE MAGNESIUM
  23. ROXICODONE [Concomitant]
     Active Substance: OXYCODONE HYDROCHLORIDE
  24. OXYGEN [Concomitant]
     Active Substance: OXYGEN
  25. AFRIN [Concomitant]
     Active Substance: OXYMETAZOLINE
  26. TRENTAL [Concomitant]
     Active Substance: PENTOXIFYLLINE
  27. PROAIR HFA [Concomitant]
     Active Substance: ALBUTEROL SULFATE
  28. PROVENTIL HFA [Concomitant]
     Active Substance: ALBUTEROL SULFATE
  29. ARTIFICIAL TEARS [Concomitant]
  30. MICRO-K [Concomitant]
     Active Substance: POTASSIUM CHLORIDE
  31. GELCLAIR [Concomitant]
  32. REVATIO [Concomitant]
     Active Substance: SILDENAFIL CITRATE
  33. SIMETHICONE (DIMETHICONE) [Concomitant]
     Active Substance: DIMETHICONE
  34. KENALOG [Concomitant]
     Active Substance: TRIAMCINOLONE ACETONIDE
  35. INCRUSE ELLIPTA [Concomitant]
     Active Substance: UMECLIDINIUM BROMIDE
  36. VITAMIN B1-B12 IM [Concomitant]

REACTIONS (1)
  - Urticaria [Unknown]
